FAERS Safety Report 16850549 (Version 1)
Quarter: 2019Q3

REPORT INFORMATION
  Report Type: Spontaneous
  Country: US (occurrence: US)
  Receive Date: 20190925
  Receipt Date: 20190925
  Transmission Date: 20191005
  Serious: No
  Sender: FDA-Public Use
  Company Number: US-UPSHER-SMITH LABORATORIES, LLC-2019USL00205

PATIENT
  Age: 76 Year
  Sex: Female
  Weight: 45.35 kg

DRUGS (12)
  1. TRIMETHOPRIM. [Concomitant]
     Active Substance: TRIMETHOPRIM
  2. ALLURA [Concomitant]
  3. BACLOFEN. [Suspect]
     Active Substance: BACLOFEN
     Indication: MYOCLONUS
  4. VITAMIN D3 [Concomitant]
     Active Substance: CHOLECALCIFEROL
  5. BACLOFEN. [Suspect]
     Active Substance: BACLOFEN
     Indication: MUSCLE SPASMS
  6. LANOXIN [Concomitant]
     Active Substance: DIGOXIN
  7. BACLOFEN. [Suspect]
     Active Substance: BACLOFEN
     Indication: STIFF PERSON SYNDROME
     Dosage: 10 MG, 1X/DAY
     Route: 048
     Dates: start: 20190309, end: 20190312
  8. VALIUM LIQUID [Concomitant]
  9. ZEBETA [Concomitant]
     Active Substance: BISOPROLOL FUMARATE
  10. D-MANNOSE [Concomitant]
  11. FOCUS EYE VITAMIN [Concomitant]
  12. BACLOFEN. [Suspect]
     Active Substance: BACLOFEN
     Indication: SPINAL CORD OPERATION

REACTIONS (1)
  - Heart rate increased [Recovered/Resolved]

NARRATIVE: CASE EVENT DATE: 20190309
